FAERS Safety Report 24317661 (Version 1)
Quarter: 2024Q3

REPORT INFORMATION
  Report Type: Spontaneous
  Country: US (occurrence: US)
  Receive Date: 20240913
  Receipt Date: 20240913
  Transmission Date: 20241016
  Serious: No
  Sender: ASTELLAS
  Company Number: US-ASTELLAS-2024-AER-004155

PATIENT
  Age: 61 Year
  Sex: Male
  Weight: 77.8 kg

DRUGS (1)
  1. PADCEV [Suspect]
     Active Substance: ENFORTUMAB VEDOTIN-EJFV
     Indication: Product used for unknown indication
     Dosage: POWDER FOR SOLUTION FOR INFUSION, MG/KG WHICH IS 77.8MG EVERY 7 DAYS^
     Route: 065

REACTIONS (3)
  - Off label use [Unknown]
  - Off label use [Unknown]
  - Underdose [Unknown]
